FAERS Safety Report 4510597-9 (Version None)
Quarter: 2004Q4

REPORT INFORMATION
  Report Type: 
  Country: None (occurrence: None)
  Receive Date: 20041124
  Receipt Date: 20031105
  Transmission Date: 20050328
  Serious: Yes (Hospitalization)
  Sender: FDA-Public Use
  Company Number: BE-ABBOTT-03P-013-0239809-00

PATIENT
  Sex: Female
  Weight: 82.3 kg

DRUGS (12)
  1. SIBUTRAMINE [Suspect]
     Indication: OBESITY
     Dosage: 10 MG
     Route: 048
     Dates: start: 20031016
  2. MIXTARD HUMAN 70/30 [Concomitant]
     Indication: DIABETES MELLITUS NON-INSULIN-DEPENDENT
     Dosage: 44
     Dates: start: 19850101
  3. MIXTARD HUMAN 70/30 [Concomitant]
     Indication: DIABETES MELLITUS
  4. PANTOPRAZOLE SODIUM [Concomitant]
     Indication: GASTROOESOPHAGEAL REFLUX DISEASE
     Dates: start: 19990101
  5. CANDESARTAN CILEXETIL [Concomitant]
     Indication: HYPERTENSION
     Dates: start: 20020101
  6. CELECOXIB [Concomitant]
     Indication: ARTHRITIS
     Dates: start: 20010101, end: 20031103
  7. GLIQUIDONE [Concomitant]
     Indication: DIABETES MELLITUS NON-INSULIN-DEPENDENT
     Dates: start: 19800101
  8. METOPROLOL [Concomitant]
     Indication: HYPERTENSION
     Dates: start: 19980101
  9. ACETYLSALICYLIC ACID [Concomitant]
     Indication: HYPERTENSION
     Dates: start: 19991001
  10. ACETYLSALICYLIC ACID [Concomitant]
     Indication: MYOCARDIAL ISCHAEMIA
  11. METOPROLOL SUCCINATE [Concomitant]
     Indication: MYOCARDIAL ISCHAEMIA
     Dates: start: 19990101
  12. LORMETAZEPAM [Concomitant]
     Indication: INSOMNIA
     Dates: start: 19850101

REACTIONS (6)
  - FAECALOMA [None]
  - INTESTINAL OBSTRUCTION [None]
  - NEUROGENIC BLADDER [None]
  - PULMONARY EMBOLISM [None]
  - RENAL FAILURE ACUTE [None]
  - URINARY RETENTION [None]
